FAERS Safety Report 8359151-1 (Version None)
Quarter: 2012Q2

REPORT INFORMATION
  Report Type: 
  Country: None (occurrence: None)
  Receive Date: 20120515
  Receipt Date: 20120507
  Transmission Date: 20120825
  Serious: Yes (Other)
  Sender: FDA-Public Use
  Company Number: ES-AMGEN-ESPSP2012028099

PATIENT
  Sex: Male

DRUGS (4)
  1. EPOETIN ALFA [Suspect]
     Indication: PRODUCT USED FOR UNKNOWN INDICATION
  2. ARANESP [Suspect]
     Dosage: 40 OR 50 MUG, QWK
  3. ARANESP [Suspect]
     Indication: PRODUCT USED FOR UNKNOWN INDICATION
     Dosage: 200 MUG, QWK
  4. PHENYTOIN [Suspect]
     Indication: TRAUMATIC INTRACRANIAL HAEMORRHAGE

REACTIONS (2)
  - APLASTIC ANAEMIA [None]
  - TRAUMATIC INTRACRANIAL HAEMORRHAGE [None]
